FAERS Safety Report 24785610 (Version 1)
Quarter: 2024Q4

REPORT INFORMATION
  Report Type: Spontaneous
  Country: US (occurrence: None)
  Receive Date: 20241228
  Receipt Date: 20241228
  Transmission Date: 20250115
  Serious: Yes (unspecified)
  Sender: Public
  Company Number: None

PATIENT
  Age: 58 Year
  Sex: Male
  Weight: 95.4 kg

DRUGS (1)
  1. OZEMPIC [Suspect]
     Active Substance: SEMAGLUTIDE
     Indication: Type 2 diabetes mellitus
     Dosage: OTHER QUANTITY : 2 2 MG;?OTHER FREQUENCY : I X WEEK INJECTION;?
     Route: 061
     Dates: start: 20240513, end: 20241210

REACTIONS (8)
  - Eye infection [None]
  - Hypersensitivity [None]
  - Ear dryness [None]
  - Otorrhoea [None]
  - Skin swelling [None]
  - Scab [None]
  - Ear swelling [None]
  - Pruritus [None]

NARRATIVE: CASE EVENT DATE: 20240515
